FAERS Safety Report 7151143-3 (Version None)
Quarter: 2010Q4

REPORT INFORMATION
  Report Type: 
  Country: None (occurrence: None)
  Receive Date: 20101206
  Receipt Date: 20101206
  Transmission Date: 20110411
  Serious: Yes (Hospitalization)
  Sender: FDA-Public Use
  Company Number: None

PATIENT
  Sex: Male
  Weight: 58.514 kg

DRUGS (11)
  1. IXABEPILONE: DAY 1,8 AND 15 OF EACH CYCLE [Suspect]
     Indication: SYNOVIAL SARCOMA METASTATIC
     Dosage: 26 MG CYCLE DAY 1:
     Dates: start: 20100120
  2. SUNITINIB: EVERY DAY STARTING ON CYCLE 1 DAY 8 [Suspect]
     Dosage: 37.5 MG CYCLE 1 DAY 8:
     Dates: start: 20100127
  3. METHADONE [Concomitant]
  4. OXYCONTIN [Concomitant]
  5. BACTROBAN [Suspect]
  6. AMBIEN [Concomitant]
  7. .. [Concomitant]
  8. DECADRON [Concomitant]
  9. NEURONTIN [Concomitant]
  10. COMBIVENT [Concomitant]
  11. AUGMENTIN '125' [Concomitant]

REACTIONS (3)
  - MALIGNANT NEOPLASM PROGRESSION [None]
  - PNEUMOTHORAX [None]
  - SYNOVIAL SARCOMA METASTATIC [None]
